FAERS Safety Report 17280569 (Version 2)
Quarter: 2022Q1

REPORT INFORMATION
  Report Type: Spontaneous
  Country: US (occurrence: US)
  Receive Date: 20200117
  Receipt Date: 20220223
  Transmission Date: 20220423
  Serious: No
  Sender: FDA-Public Use
  Company Number: US-UCBSA-2019046814

PATIENT
  Age: 4 Year
  Sex: Male

DRUGS (7)
  1. LEVETIRACETAM [Suspect]
     Active Substance: LEVETIRACETAM
     Indication: Status epilepticus
     Dosage: 30 MG/KG
  2. LEVETIRACETAM [Suspect]
     Active Substance: LEVETIRACETAM
     Indication: Off label use
  3. LORAZEPAM [Concomitant]
     Active Substance: LORAZEPAM
     Indication: Status epilepticus
     Dosage: 1 MG/KG
  4. MIDAZOLAM [Concomitant]
     Active Substance: MIDAZOLAM
     Indication: Status epilepticus
     Dosage: UNKNOWN DOSE
     Route: 041
  5. PENTOBARBITAL [Concomitant]
     Active Substance: PENTOBARBITAL
     Indication: Status epilepticus
     Dosage: 10 MG/KG
  6. PENTOBARBITAL [Concomitant]
     Active Substance: PENTOBARBITAL
     Dosage: REPEAT LOAD OF 9 MG/KG OVER 20 MINUTES
  7. PENTOBARBITAL [Concomitant]
     Active Substance: PENTOBARBITAL
     Dosage: 5 MG/KG/HR
     Route: 041

REACTIONS (2)
  - Drug ineffective for unapproved indication [Unknown]
  - Off label use [Unknown]
